FAERS Safety Report 17944525 (Version 1)
Quarter: 2020Q2

REPORT INFORMATION
  Report Type: Spontaneous
  Country: US (occurrence: US)
  Receive Date: 20200625
  Receipt Date: 20200625
  Transmission Date: 20200714
  Serious: No
  Sender: FDA-Public Use
  Company Number: US-GLAXOSMITHKLINE-US2020AMR108335

PATIENT
  Sex: Female

DRUGS (1)
  1. ZEJULA [Suspect]
     Active Substance: NIRAPARIB
     Indication: OVARIAN CANCER STAGE III
     Dosage: UNK

REACTIONS (8)
  - Constipation [Unknown]
  - Fatigue [Unknown]
  - Anxiety [Unknown]
  - Dry eye [Unknown]
  - Hypertension [Unknown]
  - Ageusia [Unknown]
  - Condition aggravated [Unknown]
  - Dry mouth [Unknown]
